FAERS Safety Report 19206095 (Version 1)
Quarter: 2021Q2

REPORT INFORMATION
  Report Type: Spontaneous
  Country: PL (occurrence: PL)
  Receive Date: 20210503
  Receipt Date: 20210503
  Transmission Date: 20210717
  Serious: Yes (Other)
  Sender: FDA-Public Use
  Company Number: PL-AUROBINDO-AUR-APL-2021-017779

PATIENT
  Age: 38 Year
  Sex: Male
  Weight: 72 kg

DRUGS (2)
  1. BISOPROLOL [Suspect]
     Active Substance: BISOPROLOL
     Indication: HYPERTENSION
     Dosage: 2.5 MILLIGRAM, ONCE A DAY
     Route: 048
  2. BISOPROLOL [Suspect]
     Active Substance: BISOPROLOL
     Dosage: 1.25 MILLIGRAM, ONCE A DAY
     Route: 048

REACTIONS (3)
  - Bradycardia [Recovered/Resolved]
  - Erectile dysfunction [Recovered/Resolved]
  - Asthenia [Recovered/Resolved]
